FAERS Safety Report 14534131 (Version 1)
Quarter: 2018Q1

REPORT INFORMATION
  Report Type: Spontaneous
  Country: US (occurrence: US)
  Receive Date: 20180215
  Receipt Date: 20180215
  Transmission Date: 20180509
  Serious: Yes (Other)
  Sender: FDA-Public Use
  Company Number: US-PROCTER+GAMBLE-GS18016667

PATIENT

DRUGS (1)
  1. NYQUIL, VERSION/FLAVOR UNKNOWN (ACETAMINOPHEN\DEXTROMETHORPHAN\DOXYLAMINE\PSEUDOEPHEDRINE) [Suspect]
     Active Substance: ACETAMINOPHEN\DEXTROMETHORPHAN\DOXYLAMINE\PSEUDOEPHEDRINE
     Dosage: DRINK 20 BOTTLES A DAY
     Route: 048

REACTIONS (3)
  - Incorrect dose administered [Unknown]
  - Seizure [Unknown]
  - Overdose [Unknown]
